FAERS Safety Report 15749491 (Version 1)
Quarter: 2018Q4

REPORT INFORMATION
  Report Type: Report from Study
  Country: DE (occurrence: DE)
  Receive Date: 20181221
  Receipt Date: 20181221
  Transmission Date: 20190205
  Serious: Yes (Other)
  Sender: FDA-Public Use
  Company Number: DE-ACCORD-096903

PATIENT
  Age: 8 Year
  Sex: Male

DRUGS (2)
  1. TOPIRAMATE. [Suspect]
     Active Substance: TOPIRAMATE
     Indication: GENERALISED TONIC-CLONIC SEIZURE
     Route: 065
  2. VALPROIC ACID. [Suspect]
     Active Substance: VALPROIC ACID
     Indication: PRODUCT USED FOR UNKNOWN INDICATION
     Dosage: UNK
     Route: 065

REACTIONS (7)
  - Motor dysfunction [Unknown]
  - Drug ineffective [Unknown]
  - Condition aggravated [Unknown]
  - Generalised tonic-clonic seizure [Recovered/Resolved]
  - Ataxia [Unknown]
  - Therapeutic response decreased [Unknown]
  - Fall [Unknown]
